FAERS Safety Report 11422365 (Version 6)
Quarter: 2021Q2

REPORT INFORMATION
  Report Type: Spontaneous
  Country: US (occurrence: US)
  Receive Date: 20150827
  Receipt Date: 20210603
  Transmission Date: 20210716
  Serious: No
  Sender: FDA-Public Use
  Company Number: US-PFIZER INC-2015282132

PATIENT
  Age: 58 Year
  Sex: Male
  Weight: 77 kg

DRUGS (17)
  1. NORCO [Concomitant]
     Active Substance: ACETAMINOPHEN\HYDROCODONE BITARTRATE
     Dosage: 1 DF, AS NEEDED  (1 EVERY 4 HRS)
  2. PRINIVIL [Concomitant]
     Active Substance: LISINOPRIL
     Dosage: 2.5 MG, DAILY
     Route: 048
     Dates: start: 20160506
  3. KLONOPIN [Concomitant]
     Active Substance: CLONAZEPAM
     Dosage: 1 MG, AS NEEDED
  4. GLUCOPHAGE [Concomitant]
     Active Substance: METFORMIN HYDROCHLORIDE
     Dosage: 1000 MG, 2X/DAY (1 TABLET BY MOUTH 2 TIMES DAILY WITH BREAKFAST AND DINNER)
     Route: 048
     Dates: start: 20160506
  5. CORGARD [Concomitant]
     Active Substance: NADOLOL
     Dosage: 20 MG, DAILY
     Route: 048
     Dates: start: 20160506
  6. NORCO [Concomitant]
     Active Substance: ACETAMINOPHEN\HYDROCODONE BITARTRATE
     Dosage: 1 DF, AS NEEDED (6 HOURS AS NEEDED)
     Route: 048
     Dates: start: 20160506, end: 20160605
  7. LISINOPRIL. [Concomitant]
     Active Substance: LISINOPRIL
     Dosage: 2.5 MG, DAILY
  8. LYRICA [Suspect]
     Active Substance: PREGABALIN
     Indication: DIABETIC NEUROPATHY
     Dosage: 200 MG, 3X/DAY
     Route: 048
     Dates: start: 2012
  9. GLUCOTROL [Concomitant]
     Active Substance: GLIPIZIDE
     Dosage: 10 MG, 2X/DAY
     Route: 048
     Dates: start: 20160506
  10. CARAFATE [Concomitant]
     Active Substance: SUCRALFATE
     Dosage: 1 G, 3X/DAY (TAKE ON AN EMPTY STOMACH)
     Route: 048
  11. PROZAC [Concomitant]
     Active Substance: FLUOXETINE HYDROCHLORIDE
     Dosage: 20 MG, DAILY
  12. KLONOPIN [Concomitant]
     Active Substance: CLONAZEPAM
     Dosage: UNK, DAILY (1 MG TABLET; SIG: 1/2?1 TAB PO QHS)
     Route: 048
     Dates: start: 20160506
  13. INSULIN NPH [INSULIN ISOPHANE BOVINE] [Concomitant]
     Active Substance: INSULIN BEEF
     Dosage: UNK
  14. NADOLOL. [Concomitant]
     Active Substance: NADOLOL
     Dosage: 20 MG, DAILY
  15. CELEXA [Concomitant]
     Active Substance: CITALOPRAM HYDROBROMIDE
     Dosage: 10 MG, DAILY
     Route: 048
     Dates: start: 20160506
  16. ZESTRIL [Concomitant]
     Active Substance: LISINOPRIL
     Dosage: 2.5 MG, DAILY
     Route: 048
     Dates: start: 20160506
  17. LYRICA [Suspect]
     Active Substance: PREGABALIN
     Indication: POLYNEUROPATHY

REACTIONS (1)
  - Anaemia [Not Recovered/Not Resolved]

NARRATIVE: CASE EVENT DATE: 2012
